FAERS Safety Report 20213947 (Version 2)
Quarter: 2022Q1

REPORT INFORMATION
  Report Type: Other
  Country: US (occurrence: None)
  Receive Date: 20211221
  Receipt Date: 20220119
  Transmission Date: 20220423
  Serious: Yes (Other)
  Sender: FDA-Public Use
  Company Number: US-ROCHE-2981823

PATIENT
  Age: 40 Year
  Sex: Male
  Weight: 93.524 kg

DRUGS (3)
  1. OCREVUS [Suspect]
     Active Substance: OCRELIZUMAB
     Indication: Multiple sclerosis
     Dosage: EVERY 6 MONTHS,?25/NOV/2019, 07/SEP/2020, 26/MAR/2020, 08/MAR/2021.
     Route: 065
     Dates: start: 20190403
  2. BACLOFEN [Concomitant]
     Active Substance: BACLOFEN
  3. ACETAMINOPHEN [Concomitant]
     Active Substance: ACETAMINOPHEN

REACTIONS (6)
  - Bradycardia [Unknown]
  - COVID-19 [Recovered/Resolved]
  - Groin pain [Unknown]
  - Overweight [Unknown]
  - Coordination abnormal [Unknown]
  - Insomnia [Unknown]

NARRATIVE: CASE EVENT DATE: 20211025
